FAERS Safety Report 8085232-6 (Version None)
Quarter: 2012Q1

REPORT INFORMATION
  Report Type: 
  Country: None (occurrence: None)
  Receive Date: 20120128
  Receipt Date: 20110329
  Transmission Date: 20120608
  Serious: No
  Sender: FDA-Public Use
  Company Number: US-ABBOTT-11P-163-0715011-00

PATIENT
  Age: 61 Year
  Sex: Male

DRUGS (3)
  1. TOPROL-XL [Concomitant]
     Indication: HYPERTENSION
  2. HUMIRA [Suspect]
     Indication: PSORIASIS
     Dates: start: 20080301
  3. CELEXA [Concomitant]
     Indication: DEPRESSION

REACTIONS (2)
  - PSORIASIS [None]
  - UPPER RESPIRATORY TRACT INFECTION [None]
